FAERS Safety Report 16407689 (Version 7)
Quarter: 2023Q1

REPORT INFORMATION
  Report Type: Spontaneous
  Country: JP (occurrence: JP)
  Receive Date: 20190609
  Receipt Date: 20230309
  Transmission Date: 20230418
  Serious: Yes (Death, Hospitalization, Other)
  Sender: FDA-Public Use
  Company Number: JP-NBI-S201900186

PATIENT
  Age: 72 Year
  Sex: Male

DRUGS (1)
  1. GILOTRIF [Suspect]
     Active Substance: AFATINIB
     Indication: Lung adenocarcinoma
     Route: 048

REACTIONS (5)
  - Vein rupture [Fatal]
  - Cardio-respiratory arrest [Fatal]
  - Intra-abdominal haemorrhage [Fatal]
  - Bronchopulmonary aspergillosis [Unknown]
  - Malignant neoplasm progression [Unknown]
